FAERS Safety Report 5531869-5 (Version None)
Quarter: 2007Q4

REPORT INFORMATION
  Report Type: 
  Country: None (occurrence: None)
  Receive Date: 20071203
  Receipt Date: 20071120
  Transmission Date: 20080405
  Serious: Yes (Life-Threatening)
  Sender: FDA-Public Use
  Company Number: FR-ROCHE-532664

PATIENT
  Age: 44 Year
  Sex: Male

DRUGS (8)
  1. CELLCEPT [Suspect]
     Indication: DRUG USE FOR UNKNOWN INDICATION
     Route: 048
     Dates: start: 20011101
  2. CELLCEPT [Suspect]
     Dosage: DOSAGE PROGRESSIVELY REDUCED
     Route: 048
     Dates: start: 20020101
  3. PREDNISONE TAB [Suspect]
     Indication: DRUG USE FOR UNKNOWN INDICATION
     Route: 048
     Dates: start: 20011101
  4. PREDNISONE TAB [Suspect]
     Route: 048
  5. PROGRAF [Suspect]
     Indication: DRUG USE FOR UNKNOWN INDICATION
     Route: 048
     Dates: start: 20011101
  6. PROGRAF [Suspect]
     Dosage: DOSAGE PROGRESSIVELY REDUCED
     Route: 048
     Dates: start: 20020101
  7. PROGRAF [Suspect]
     Route: 048
  8. VFEND [Suspect]
     Indication: DRUG USE FOR UNKNOWN INDICATION
     Route: 048
     Dates: start: 20020101

REACTIONS (2)
  - PHOTOSENSITIVITY REACTION [None]
  - SKIN CANCER [None]
